FAERS Safety Report 5651140-0 (Version None)
Quarter: 2008Q1

REPORT INFORMATION
  Report Type: 
  Country: None (occurrence: None)
  Receive Date: 20080131
  Receipt Date: 20071209
  Transmission Date: 20080703
  Serious: No
  Sender: FDA-Public Use
  Company Number: US200712001891

PATIENT
  Age: 55 Year
  Sex: Male
  Weight: 112.5 kg

DRUGS (4)
  1. BYETTA [Suspect]
     Indication: DIABETES MELLITUS
     Dosage: 5 UG, 2/D, SUBCUTANEOUS
     Route: 058
     Dates: start: 20071207
  2. ALLOPURINOL [Concomitant]
  3. COLCHICINE (COLCHICINE) [Concomitant]
  4. LANTUS [Concomitant]

REACTIONS (2)
  - ARTHRALGIA [None]
  - GOUT [None]
